FAERS Safety Report 4405709-1 (Version None)
Quarter: 2004Q3

REPORT INFORMATION
  Report Type: 
  Country: None (occurrence: None)
  Receive Date: 20040716
  Receipt Date: 20040624
  Transmission Date: 20050211
  Serious: No
  Sender: FDA-Public Use
  Company Number: 2004PK01190

PATIENT
  Sex: Male
  Weight: 55 kg

DRUGS (1)
  1. NEXIUM [Suspect]
     Indication: GASTRIC ULCER

REACTIONS (10)
  - APHASIA [None]
  - ASTHENIA [None]
  - BLOOD GLUCOSE INCREASED [None]
  - DIZZINESS [None]
  - FALL [None]
  - FEELING ABNORMAL [None]
  - FEELING DRUNK [None]
  - PARALYSIS [None]
  - TONGUE DRY [None]
  - WEIGHT DECREASED [None]
